FAERS Safety Report 8829936 (Version 2)
Quarter: 2014Q3

REPORT INFORMATION
  Report Type: Report from Study
  Country: US (occurrence: US)
  Receive Date: 20121008
  Receipt Date: 20140910
  Transmission Date: 20150326
  Serious: Yes (Death, Other)
  Sender: FDA-Public Use
  Company Number: US-ROCHE-1136011

PATIENT
  Sex: Female

DRUGS (2)
  1. RITUXAN [Suspect]
     Active Substance: RITUXIMAB
     Indication: NON-HODGKIN^S LYMPHOMA
     Dosage: FIRST COURSE
     Route: 065
     Dates: start: 19980112, end: 19980331
  2. RITUXAN [Suspect]
     Active Substance: RITUXIMAB
     Dosage: SECOND COURSE
     Route: 042
     Dates: start: 19980521, end: 19980611

REACTIONS (4)
  - Death [Fatal]
  - Hydronephrosis [Unknown]
  - Pleural effusion [Unknown]
  - Deep vein thrombosis [Unknown]
